FAERS Safety Report 6272543-X (Version None)
Quarter: 2009Q3

REPORT INFORMATION
  Report Type: 
  Country: None (occurrence: None)
  Receive Date: 20090717
  Receipt Date: 20090707
  Transmission Date: 20100115
  Serious: Yes (Other)
  Sender: FDA-Public Use
  Company Number: PHHY2009CA17366

PATIENT
  Sex: Male

DRUGS (8)
  1. DIOVAN [Suspect]
     Dosage: 160 MG PER DAY
     Route: 048
  2. DIOVAN [Suspect]
     Dosage: 320 MG PER DAY
     Route: 048
  3. DIOVAN [Suspect]
     Dosage: 160 MG PER DAY
     Route: 048
  4. DIOVAN [Suspect]
     Dosage: 320 MG PER DAY
     Route: 048
  5. TAMSULOSIN HCL [Concomitant]
     Dosage: 0.4 MG
  6. ENALAPRIL MALEATE [Concomitant]
     Dosage: 10 MG, BID
  7. ACEBUTOLOL [Concomitant]
     Dosage: 100 MG, BID
  8. COLCHICINE [Concomitant]
     Dosage: 0.6 MG

REACTIONS (4)
  - BLOOD PRESSURE INCREASED [None]
  - OEDEMA PERIPHERAL [None]
  - PROCTALGIA [None]
  - VIRAL DIARRHOEA [None]
